FAERS Safety Report 5393000-9 (Version None)
Quarter: 2007Q3

REPORT INFORMATION
  Report Type: 
  Country: None (occurrence: None)
  Receive Date: 20070719
  Receipt Date: 20070709
  Transmission Date: 20080115
  Serious: Yes (Death)
  Sender: FDA-Public Use
  Company Number: GXKR2007GB05929

PATIENT
  Age: 90 Year
  Sex: Male

DRUGS (3)
  1. ASPIRIN [Suspect]
     Indication: ACUTE CORONARY SYNDROME
     Dosage: 75 MG
  2. CLEXANE (ENOAPARIN SODIUM, HEPARIN-FRACTION, SODIUM SALT) [Suspect]
     Indication: ACUTE CORONARY SYNDROME
     Dosage: SUBCUTANEOUS
     Route: 058
  3. PLAVIX [Suspect]
     Indication: ACUTE CORONARY SYNDROME
     Dosage: 75 MG, ORAL
     Route: 048

REACTIONS (2)
  - TRAUMATIC HAEMATOMA [None]
  - WOUND SEPSIS [None]
